FAERS Safety Report 24311286 (Version 4)
Quarter: 2024Q4

REPORT INFORMATION
  Report Type: Spontaneous
  Country: US (occurrence: US)
  Receive Date: 20240912
  Receipt Date: 20241014
  Transmission Date: 20250115
  Serious: Yes (Disabling, Other)
  Sender: Haleon PLC
  Company Number: US-HALEON-2196474

PATIENT
  Age: 55 Year
  Sex: Female
  Weight: 63 kg

DRUGS (5)
  1. NICODERM CQ [Suspect]
     Active Substance: NICOTINE
     Indication: Smoking cessation therapy
     Route: 065
  2. NICORETTE [Suspect]
     Active Substance: NICOTINE
     Indication: Smoking cessation therapy
     Route: 065
  3. NICORETTE [Suspect]
     Active Substance: NICOTINE
     Indication: Smoking cessation therapy
     Route: 065
  4. NICOTINE POLACRILEX [Suspect]
     Active Substance: NICOTINE
     Indication: Smoking cessation therapy
     Route: 048
  5. NICOTINE POLACRILEX [Suspect]
     Active Substance: NICOTINE
     Route: 048

REACTIONS (5)
  - Liver injury [Not Recovered/Not Resolved]
  - Exposure during pregnancy [Unknown]
  - Nicotine dependence [Not Recovered/Not Resolved]
  - Live birth [Unknown]
  - Product use issue [Unknown]
